FAERS Safety Report 8199383-9 (Version None)
Quarter: 2012Q1

REPORT INFORMATION
  Report Type: 
  Country: None (occurrence: None)
  Receive Date: 20120309
  Receipt Date: 20120229
  Transmission Date: 20120608
  Serious: Yes (Other)
  Sender: FDA-Public Use
  Company Number: US-FRI-1000028429

PATIENT
  Sex: Female
  Weight: 68.03 kg

DRUGS (6)
  1. LEVOTHROID [Suspect]
     Dates: start: 20080601, end: 20100301
  2. NAPROXEN [Concomitant]
  3. IRON [Concomitant]
  4. SYNTHROID [Suspect]
     Dosage: 75 MCG
     Dates: start: 20100301
  5. SYNTHROID [Suspect]
     Dosage: 50 MCG
     Dates: start: 20080401, end: 20080601
  6. LEXAPRO [Concomitant]
     Dosage: 20 MG

REACTIONS (4)
  - GAIT DISTURBANCE [None]
  - WEIGHT INCREASED [None]
  - DYSARTHRIA [None]
  - MENTAL IMPAIRMENT [None]
